FAERS Safety Report 16663610 (Version 1)
Quarter: 2019Q3

REPORT INFORMATION
  Report Type: Spontaneous
  Country: FR (occurrence: FR)
  Receive Date: 20190802
  Receipt Date: 20190802
  Transmission Date: 20191004
  Serious: Yes (Death, Other)
  Sender: FDA-Public Use
  Company Number: FR-BAXTER-2019BAX014945

PATIENT
  Age: 2 Year
  Sex: Male
  Weight: 12 kg

DRUGS (1)
  1. HOLOXAN 2000 MG, POUDRE POUR USAGE PARENT?RAL [Suspect]
     Active Substance: IFOSFAMIDE
     Indication: NEPHROBLASTOMA
     Route: 042
     Dates: start: 20160111, end: 20160111

REACTIONS (4)
  - Incorrect dose administered [Recovered/Resolved]
  - Anaemia [Recovered/Resolved]
  - Accidental overdose [Recovered/Resolved]
  - Leukopenia [Recovered/Resolved]

NARRATIVE: CASE EVENT DATE: 20160111
